FAERS Safety Report 4906870-2 (Version None)
Quarter: 2006Q1

REPORT INFORMATION
  Report Type: 
  Country: None (occurrence: None)
  Receive Date: 20060207
  Receipt Date: 20060126
  Transmission Date: 20060701
  Serious: Yes (Other)
  Sender: FDA-Public Use
  Company Number: AT-2004-037721

PATIENT
  Age: 79 Year
  Sex: Female

DRUGS (2)
  1. SOTALOL HCL [Suspect]
     Indication: ATRIAL FIBRILLATION
     Dosage: SEE IMAGE
     Route: 048
     Dates: start: 20031101, end: 20040501
  2. SOTALOL HCL [Suspect]
     Indication: ATRIAL FIBRILLATION
     Dosage: SEE IMAGE
     Route: 048
     Dates: start: 20040501, end: 20050201

REACTIONS (2)
  - MYELOPROLIFERATIVE DISORDER [None]
  - THROMBOCYTOPENIA [None]
